FAERS Safety Report 6871801-5 (Version None)
Quarter: 2010Q3

REPORT INFORMATION
  Report Type: 
  Country: None (occurrence: None)
  Receive Date: 20100723
  Receipt Date: 20100712
  Transmission Date: 20110219
  Serious: Yes (Hospitalization)
  Sender: FDA-Public Use
  Company Number: B0651842A

PATIENT
  Sex: Male
  Weight: 62 kg

DRUGS (15)
  1. ZYLORIC [Suspect]
     Indication: HYPERURICAEMIA
     Dosage: 200MG PER DAY
     Route: 048
     Dates: start: 20090819, end: 20100330
  2. PAXIL [Suspect]
     Indication: DEPRESSION
     Dosage: 20MG PER DAY
     Route: 048
     Dates: start: 20081008, end: 20100330
  3. PLAVIX [Suspect]
     Indication: ARTERIOSCLEROSIS OBLITERANS
     Dosage: 75MG PER DAY
     Route: 048
     Dates: start: 20080716, end: 20100330
  4. TAKEPRON [Suspect]
     Indication: GASTRIC ULCER
     Dosage: 15MG PER DAY
     Route: 048
     Dates: end: 20100330
  5. FLUVASTATIN [Suspect]
     Indication: HYPERCHOLESTEROLAEMIA
     Dosage: 20MG PER DAY
     Route: 048
     Dates: start: 20081008, end: 20100330
  6. DIOVAN [Suspect]
     Indication: CARDIAC FAILURE
     Dosage: 80MG PER DAY
     Route: 048
     Dates: start: 20051027, end: 20100330
  7. DOGMATYL [Suspect]
     Indication: GASTRITIS
     Dosage: 50MG PER DAY
     Route: 048
     Dates: start: 20081008, end: 20100330
  8. ALDACTONE [Concomitant]
     Route: 048
  9. AMARYL [Concomitant]
     Route: 048
  10. FUROSEMIDE [Concomitant]
  11. WARFARIN SODIUM [Concomitant]
     Route: 048
  12. ARTIST [Concomitant]
     Route: 048
  13. BEPRICOR [Concomitant]
     Route: 048
  14. GASMOTIN [Concomitant]
     Route: 048
  15. MYSLEE [Concomitant]
     Route: 048

REACTIONS (7)
  - COUGH [None]
  - DECREASED APPETITE [None]
  - INTERSTITIAL LUNG DISEASE [None]
  - MALAISE [None]
  - PLEURAL EFFUSION [None]
  - PNEUMONIA [None]
  - PNEUMONITIS [None]
